FAERS Safety Report 19484193 (Version 1)
Quarter: 2021Q3

REPORT INFORMATION
  Report Type: Spontaneous
  Country: US (occurrence: US)
  Receive Date: 20210701
  Receipt Date: 20210701
  Transmission Date: 20211014
  Serious: Yes (Other)
  Sender: FDA-Public Use
  Company Number: US-TEVA-2021-US-1929979

PATIENT
  Age: 39 Year
  Sex: Female

DRUGS (1)
  1. CLINDAMYCIN. [Suspect]
     Active Substance: CLINDAMYCIN
     Indication: PAIN IN JAW
     Route: 065
     Dates: start: 2008

REACTIONS (5)
  - Maternal exposure during pregnancy [Unknown]
  - Diarrhoea [Unknown]
  - Rash [Unknown]
  - Abortion spontaneous [Unknown]
  - Abdominal pain upper [Unknown]

NARRATIVE: CASE EVENT DATE: 2008
